FAERS Safety Report 10154091 (Version 1)
Quarter: 2014Q2

REPORT INFORMATION
  Report Type: Spontaneous
  Country: FR (occurrence: FR)
  Receive Date: 20140506
  Receipt Date: 20140506
  Transmission Date: 20141212
  Serious: Yes (Hospitalization)
  Sender: FDA-Public Use
  Company Number: FR-ASTRAZENECA-2014SE29876

PATIENT
  Age: 74 Year
  Sex: Male

DRUGS (11)
  1. CRESTOR [Suspect]
     Route: 048
     Dates: end: 20140305
  2. TAHOR [Suspect]
     Route: 048
     Dates: start: 20140305, end: 20140410
  3. KARDEGIC [Concomitant]
  4. ADANCOR [Concomitant]
  5. PROCORALAN [Concomitant]
  6. ALLOPURINOL [Concomitant]
  7. IMOVANE [Concomitant]
  8. PIASCLEDINE [Concomitant]
  9. TRAMADOL [Concomitant]
     Dosage: SR, 150 MG, TWO TIMES A DAY
     Dates: start: 201402
  10. FRAGMINE [Concomitant]
     Dates: start: 20140213, end: 20140407
  11. EXFORGE [Concomitant]

REACTIONS (2)
  - Muscle rupture [Not Recovered/Not Resolved]
  - Therapy cessation [Unknown]
